FAERS Safety Report 8817969 (Version 1)
Quarter: 2012Q4

REPORT INFORMATION
  Report Type: 
  Country: US (occurrence: US)
  Receive Date: 20121001
  Receipt Date: 20121001
  Transmission Date: 20130627
  Serious: Yes (Other)
  Sender: FDA-Public Use
  Company Number: US-ASTRAZENECA-2012SE73406

PATIENT
  Age: 67 Year
  Sex: Male

DRUGS (2)
  1. BRILINTA [Suspect]
     Indication: MYOCARDIAL INFARCTION
     Route: 048
  2. BABY ASPIRIN [Concomitant]

REACTIONS (2)
  - Pulmonary embolism [Unknown]
  - Gastrointestinal haemorrhage [Unknown]
